FAERS Safety Report 8852969 (Version 1)
Quarter: 2012Q4

REPORT INFORMATION
  Report Type: 
  Country: CA (occurrence: CA)
  Receive Date: 20121022
  Receipt Date: 20121022
  Transmission Date: 20130627
  Serious: Yes (Other)
  Sender: FDA-Public Use
  Company Number: CA-009507513-1210CAN009696

PATIENT
  Age: 20 Year
  Sex: Male

DRUGS (2)
  1. SAPHRIS [Suspect]
     Indication: SCHIZOPHRENIA
     Dosage: 10 mg, qd
     Route: 060
     Dates: start: 20121010
  2. ABILIFY [Concomitant]
     Indication: SCHIZOPHRENIA
     Dosage: 10 mg, qd
     Route: 048
     Dates: start: 2012

REACTIONS (2)
  - Melaena [Not Recovered/Not Resolved]
  - Inappropriate schedule of drug administration [Unknown]
